FAERS Safety Report 16337679 (Version 3)
Quarter: 2019Q3

REPORT INFORMATION
  Report Type: Report from Study
  Country: BR (occurrence: BR)
  Receive Date: 20190521
  Receipt Date: 20190802
  Transmission Date: 20191004
  Serious: Yes (Other)
  Sender: FDA-Public Use
  Company Number: PHHY2018BR166064

PATIENT
  Age: 70 Year
  Sex: Female
  Weight: 83 kg

DRUGS (3)
  1. COSENTYX [Suspect]
     Active Substance: SECUKINUMAB
     Indication: PSORIATIC ARTHROPATHY
     Dosage: 300 MG, QW (TWO APPLICATIONS PER WEEK OF 150 MG EACH)
     Route: 065
     Dates: start: 20181114
  2. COSENTYX [Suspect]
     Active Substance: SECUKINUMAB
     Indication: ARTHRALGIA
     Dosage: UNK
     Route: 065
     Dates: start: 20190412
  3. COSENTYX [Suspect]
     Active Substance: SECUKINUMAB
     Indication: PSORIASIS

REACTIONS (13)
  - Device defective [Unknown]
  - Gait disturbance [Recovering/Resolving]
  - Nervousness [Unknown]
  - Psoriasis [Unknown]
  - Skin burning sensation [Recovering/Resolving]
  - Malaise [Unknown]
  - Bronchitis [Unknown]
  - Skin discolouration [Recovering/Resolving]
  - Skin exfoliation [Recovering/Resolving]
  - Pneumonia [Recovered/Resolved]
  - Skin haemorrhage [Recovering/Resolving]
  - Cough [Unknown]
  - Decreased appetite [Unknown]

NARRATIVE: CASE EVENT DATE: 20190426
